FAERS Safety Report 6582179-9 (Version None)
Quarter: 2010Q1

REPORT INFORMATION
  Report Type: 
  Country: None (occurrence: None)
  Receive Date: 20100201
  Receipt Date: 20100201
  Transmission Date: 20100710
  Serious: No
  Sender: FDA-Public Use
  Company Number: None

PATIENT

DRUGS (1)
  1. VASELINE CC MB SALVE 80Z [Suspect]

REACTIONS (3)
  - INCONTINENCE [None]
  - PRODUCT QUALITY ISSUE [None]
  - SKIN DISORDER [None]
